FAERS Safety Report 12798295 (Version 9)
Quarter: 2017Q4

REPORT INFORMATION
  Report Type: Report from Study
  Country: US (occurrence: US)
  Receive Date: 20160930
  Receipt Date: 20171204
  Transmission Date: 20180320
  Serious: Yes (Hospitalization, Other)
  Sender: FDA-Public Use
  Company Number: US-JNJFOC-20160821580

PATIENT
  Age: 73 Year
  Sex: Male

DRUGS (33)
  1. IMBRUVICA [Suspect]
     Active Substance: IBRUTINIB
     Indication: ACUTE LYMPHOCYTIC LEUKAEMIA
     Route: 048
     Dates: start: 20161004
  2. LOSARTAN. [Concomitant]
     Active Substance: LOSARTAN
  3. ALLOPURINOL. [Concomitant]
     Active Substance: ALLOPURINOL
  4. MAGNESIUM [Concomitant]
     Active Substance: MAGNESIUM
  5. TYLENOL [Concomitant]
     Active Substance: ACETAMINOPHEN
  6. LINZESS [Concomitant]
     Active Substance: LINACLOTIDE
  7. IMBRUVICA [Suspect]
     Active Substance: IBRUTINIB
     Indication: CHRONIC LYMPHOCYTIC LEUKAEMIA
     Route: 048
     Dates: start: 20160809
  8. IMBRUVICA [Suspect]
     Active Substance: IBRUTINIB
     Indication: CHRONIC LYMPHOCYTIC LEUKAEMIA
     Route: 048
     Dates: start: 20160813, end: 2016
  9. PROTONIX [Concomitant]
     Active Substance: PANTOPRAZOLE SODIUM
  10. NORVASC [Concomitant]
     Active Substance: AMLODIPINE BESYLATE
  11. BISACODYL. [Concomitant]
     Active Substance: BISACODYL
  12. DOCUSATE SODIUM. [Concomitant]
     Active Substance: DOCUSATE SODIUM
  13. LUMIGAN [Concomitant]
     Active Substance: BIMATOPROST
  14. VITAMIN D [Concomitant]
     Active Substance: CHOLECALCIFEROL
  15. HYDROXYCHLOROQUINE [Concomitant]
     Active Substance: HYDROXYCHLOROQUINE
  16. OXYBUTYNIN. [Concomitant]
     Active Substance: OXYBUTYNIN CHLORIDE
  17. ZOLEDRONIC ACID [Concomitant]
     Active Substance: ZOLEDRONIC ACID
  18. IMBRUVICA [Suspect]
     Active Substance: IBRUTINIB
     Indication: CHRONIC LYMPHOCYTIC LEUKAEMIA
     Route: 048
     Dates: start: 20161004
  19. IMBRUVICA [Suspect]
     Active Substance: IBRUTINIB
     Indication: ACUTE LYMPHOCYTIC LEUKAEMIA
     Route: 048
     Dates: start: 20160809
  20. POTASSIUM [Concomitant]
     Active Substance: POTASSIUM
  21. FERROUS FUMARATE [Concomitant]
     Active Substance: FERROUS FUMARATE
  22. IMBRUVICA [Suspect]
     Active Substance: IBRUTINIB
     Indication: ACUTE LYMPHOCYTIC LEUKAEMIA
     Route: 048
     Dates: start: 20160813, end: 2016
  23. FLUTICASONE. [Concomitant]
     Active Substance: FLUTICASONE
  24. LACTULOSE. [Concomitant]
     Active Substance: LACTULOSE
  25. TRAMADOL. [Concomitant]
     Active Substance: TRAMADOL
  26. FLOMAX [Concomitant]
     Active Substance: TAMSULOSIN HYDROCHLORIDE
  27. CYCLOBENZAPRINE. [Concomitant]
     Active Substance: CYCLOBENZAPRINE
  28. MELATONIN [Concomitant]
     Active Substance: MELATONIN
  29. HCTZ [Concomitant]
     Active Substance: HYDROCHLOROTHIAZIDE
  30. APAP [Concomitant]
     Active Substance: ACETAMINOPHEN
  31. DORZOLAMIDE [Concomitant]
     Active Substance: DORZOLAMIDE
  32. BUSPAR [Concomitant]
     Active Substance: BUSPIRONE HYDROCHLORIDE
  33. ACETAMINOPHEN AND CODEINE [Concomitant]
     Active Substance: ACETAMINOPHEN\CODEINE PHOSPHATE

REACTIONS (19)
  - Pleural effusion [Not Recovered/Not Resolved]
  - Off label use [Unknown]
  - Constipation [Not Recovered/Not Resolved]
  - Fatigue [Not Recovered/Not Resolved]
  - Dyspepsia [Not Recovered/Not Resolved]
  - Throat irritation [Unknown]
  - Eructation [Unknown]
  - Sputum discoloured [Unknown]
  - Weight increased [Unknown]
  - Anorectal discomfort [Recovered/Resolved]
  - Product use in unapproved indication [Unknown]
  - Productive cough [Not Recovered/Not Resolved]
  - Pneumonia [Unknown]
  - Blood pressure increased [Unknown]
  - Nasal congestion [Unknown]
  - Epistaxis [Unknown]
  - Pneumothorax [Unknown]
  - Insomnia [Unknown]
  - Asthenia [Not Recovered/Not Resolved]

NARRATIVE: CASE EVENT DATE: 20160813
